FAERS Safety Report 13047477 (Version 1)
Quarter: 2016Q4

REPORT INFORMATION
  Report Type: Spontaneous
  Country: US (occurrence: US)
  Receive Date: 20161220
  Receipt Date: 20161220
  Transmission Date: 20170207
  Serious: Yes (Hospitalization)
  Sender: FDA-Public Use
  Company Number: US-UNICHEM LABORATORIES LIMITED-UCM201612-000293

PATIENT
  Age: 24 Year
  Sex: Male

DRUGS (6)
  1. ALCHOLOL [Suspect]
     Active Substance: ALCOHOL
  2. PRAZOSIN [Suspect]
     Active Substance: PRAZOSIN
  3. QUETIAPINE. [Suspect]
     Active Substance: QUETIAPINE
  4. ATENOLOL. [Suspect]
     Active Substance: ATENOLOL
  5. DIVALPROEX SODIUM. [Suspect]
     Active Substance: DIVALPROEX SODIUM
  6. CYCLOBENZAPRINE [Suspect]
     Active Substance: CYCLOBENZAPRINE

REACTIONS (4)
  - Intentional overdose [Recovered/Resolved]
  - Shock [Recovered/Resolved]
  - Acute respiratory distress syndrome [Recovered/Resolved]
  - Sinus bradycardia [Recovered/Resolved]
